FAERS Safety Report 21571942 (Version 3)
Quarter: 2022Q4

REPORT INFORMATION
  Report Type: Spontaneous
  Country: JP (occurrence: JP)
  Receive Date: 20221109
  Receipt Date: 20221117
  Transmission Date: 20230113
  Serious: Yes (Death)
  Sender: FDA-Public Use
  Company Number: JP-OTSUKA-2022_050957

PATIENT
  Age: 88 Year
  Sex: Male

DRUGS (1)
  1. SAMSCA [Suspect]
     Active Substance: TOLVAPTAN
     Indication: Cardiac failure
     Dosage: 15 MG, UNK
     Route: 065

REACTIONS (1)
  - Marasmus [Fatal]
